FAERS Safety Report 9765694 (Version 1)
Quarter: 2013Q4

REPORT INFORMATION
  Report Type: Spontaneous
  Country: US (occurrence: US)
  Receive Date: 20131217
  Receipt Date: 20131217
  Transmission Date: 20140711
  Serious: No
  Sender: FDA-Public Use
  Company Number: US-GLAXOSMITHKLINE-A1010818A

PATIENT
  Age: 67 Year
  Sex: Female

DRUGS (1)
  1. VOTRIENT [Suspect]
     Indication: RENAL CANCER
     Dosage: 400MG PER DAY

REACTIONS (8)
  - Malaise [Recovered/Resolved]
  - Adverse drug reaction [Recovered/Resolved]
  - Mouth ulceration [Recovered/Resolved]
  - Buccal mucosal roughening [Recovered/Resolved]
  - Dry skin [Recovered/Resolved]
  - Abdominal discomfort [Recovered/Resolved]
  - Gastrooesophageal reflux disease [Recovered/Resolved]
  - Irritable bowel syndrome [Recovered/Resolved]
